FAERS Safety Report 5327453-9 (Version None)
Quarter: 2007Q2

REPORT INFORMATION
  Report Type: 
  Country: None (occurrence: None)
  Receive Date: 20070517
  Receipt Date: 20070129
  Transmission Date: 20071010
  Serious: Yes (Other)
  Sender: FDA-Public Use
  Company Number: US-JNJFOC-20070104365

PATIENT
  Age: 43 Year
  Sex: Male

DRUGS (7)
  1. TRAMADOL HCL [Suspect]
     Indication: INTENTIONAL DRUG MISUSE
     Route: 048
  2. ACETAMINOPHEN W/ PROPOXYPHENE HCL [Suspect]
     Indication: INTENTIONAL DRUG MISUSE
     Route: 048
  3. SSRI [Suspect]
     Indication: DRUG ABUSER
     Route: 048
  4. RANITIDINE [Suspect]
     Indication: DRUG ABUSER
     Route: 048
  5. ATYPICAL ANTIPSYCHOTIC [Suspect]
     Indication: DRUG ABUSER
     Route: 048
  6. METHACARBANOL [Suspect]
     Indication: DRUG ABUSER
     Route: 048
  7. BENZODIAZEPINE [Suspect]
     Indication: DRUG ABUSER
     Route: 048

REACTIONS (3)
  - LETHARGY [None]
  - MULTIPLE DRUG OVERDOSE [None]
  - SUICIDE ATTEMPT [None]
